FAERS Safety Report 5834524-7 (Version None)
Quarter: 2008Q3

REPORT INFORMATION
  Report Type: 
  Country: None (occurrence: None)
  Receive Date: 20080801
  Receipt Date: 20080716
  Transmission Date: 20090109
  Serious: Yes (Other)
  Sender: FDA-Public Use
  Company Number: 2008AL008321

PATIENT
  Age: 80 Year
  Sex: Female
  Weight: 45.3597 kg

DRUGS (1)
  1. DIGOXIN [Suspect]
     Indication: CARDIAC FAILURE
     Dosage: 0.125MG DAILY PO
     Route: 048
     Dates: start: 20080219, end: 20080429

REACTIONS (11)
  - ABDOMINAL PAIN UPPER [None]
  - DECREASED APPETITE [None]
  - DYSPNOEA [None]
  - EXTRASYSTOLES [None]
  - FATIGUE [None]
  - INSOMNIA [None]
  - LIMB DISCOMFORT [None]
  - MUSCLE TIGHTNESS [None]
  - PHOTOPSIA [None]
  - VISION BLURRED [None]
  - WEIGHT DECREASED [None]
